FAERS Safety Report 11246512 (Version 1)
Quarter: 2015Q3

REPORT INFORMATION
  Report Type: Spontaneous
  Country: US (occurrence: US)
  Receive Date: 20150708
  Receipt Date: 20150708
  Transmission Date: 20151125
  Serious: Yes (Other)
  Sender: FDA-Public Use
  Company Number: US-CIPLA LTD.-2015US05465

PATIENT

DRUGS (10)
  1. LOPINAVIR/RITONAVIR [Concomitant]
     Active Substance: LOPINAVIR\RITONAVIR
     Route: 065
  2. TENOFOVIR DISOPROXIL FUMARATE. [Suspect]
     Active Substance: TENOFOVIR DISOPROXIL FUMARATE
     Indication: HIV INFECTION
     Dosage: 8 MG/KG ONCE DAILY, UP TO 300 MG (7.5 SCOOPS).
     Route: 048
  3. STAVUDINE. [Suspect]
     Active Substance: STAVUDINE
     Indication: HIV INFECTION
     Route: 065
  4. ZIDOVUDINE. [Suspect]
     Active Substance: ZIDOVUDINE
     Indication: HIV INFECTION
     Route: 065
  5. LAMIVUDINE. [Concomitant]
     Active Substance: LAMIVUDINE
     Route: 065
  6. ABACAVIR. [Concomitant]
     Active Substance: ABACAVIR
     Route: 065
  7. EFAVIRENZ [Concomitant]
     Active Substance: EFAVIRENZ
     Route: 065
  8. NELFINAVIR [Concomitant]
     Active Substance: NELFINAVIR
     Route: 065
  9. EMTRICITABINE [Concomitant]
     Active Substance: EMTRICITABINE
     Route: 065
  10. NEVIRAPINE. [Concomitant]
     Active Substance: NEVIRAPINE
     Route: 065

REACTIONS (1)
  - Brain neoplasm [Unknown]
